FAERS Safety Report 7610087-0 (Version None)
Quarter: 2011Q3

REPORT INFORMATION
  Report Type: 
  Country: None (occurrence: None)
  Receive Date: 20110715
  Receipt Date: 20110706
  Transmission Date: 20111222
  Serious: Yes (Hospitalization)
  Sender: FDA-Public Use
  Company Number: US-BIOGENIDEC-2011BI006024

PATIENT
  Sex: Female

DRUGS (2)
  1. AVONEX [Suspect]
     Indication: MULTIPLE SCLEROSIS
     Route: 030
     Dates: start: 20101123
  2. INSULIN [Concomitant]
     Indication: DIABETES MELLITUS

REACTIONS (11)
  - ASTHENIA [None]
  - PAIN IN EXTREMITY [None]
  - BLINDNESS UNILATERAL [None]
  - INTERNAL FIXATION OF FRACTURE [None]
  - POST PROCEDURAL COMPLICATION [None]
  - HALLUCINATION [None]
  - CHILLS [None]
  - FATIGUE [None]
  - DEPRESSION [None]
  - BONE DISORDER [None]
  - TREMOR [None]
